FAERS Safety Report 13782669 (Version 1)
Quarter: 2017Q3

REPORT INFORMATION
  Report Type: Spontaneous
  Country: US (occurrence: US)
  Receive Date: 20170724
  Receipt Date: 20170724
  Transmission Date: 20171127
  Serious: Yes (Other)
  Sender: FDA-Public Use
  Company Number: US-PFIZER INC-2017314157

PATIENT
  Age: 14 Year
  Sex: Male
  Weight: 55 kg

DRUGS (4)
  1. HYDROCORTISONE. [Concomitant]
     Active Substance: HYDROCORTISONE
     Indication: ADRENAL INSUFFICIENCY
     Dosage: 7.5 MG, 2X/DAY
     Route: 048
  2. HYDROCORTISONE. [Concomitant]
     Active Substance: HYDROCORTISONE
     Indication: SECONDARY HYPOGONADISM
  3. SYNTHROID [Concomitant]
     Active Substance: LEVOTHYROXINE SODIUM
     Indication: HYPOTHYROIDISM
     Dosage: 50 UG, DAILY (MISSING 1 TO 2 DOSES PER WEEK WHEN HE GOES TO A FRIEND^S HOUSE OR HIS FATHER^S HOUSE)
  4. GENOTROPIN [Suspect]
     Active Substance: SOMATROPIN
     Indication: GROWTH HORMONE DEFICIENCY
     Dosage: 1.4 MG, 1X/DAY(AT BEDTIME)
     Route: 058
     Dates: start: 2016

REACTIONS (20)
  - Drug effect incomplete [Unknown]
  - Thyroxine free decreased [Unknown]
  - Headache [Unknown]
  - Disorientation [Unknown]
  - Dry skin [Unknown]
  - Temperature intolerance [Unknown]
  - Dizziness [Unknown]
  - Phonophobia [Unknown]
  - Vision blurred [Unknown]
  - Weight increased [Unknown]
  - Constipation [Unknown]
  - Insulin-like growth factor decreased [Unknown]
  - Visual field defect [Unknown]
  - Insomnia [Unknown]
  - Asthenia [Unknown]
  - Drug dose omission [Unknown]
  - Thyroid hormones decreased [Unknown]
  - Decreased appetite [Unknown]
  - Nausea [Unknown]
  - Rash papular [Unknown]
